FAERS Safety Report 20299538 (Version 2)
Quarter: 2022Q1

REPORT INFORMATION
  Report Type: Report from Study
  Country: US (occurrence: US)
  Receive Date: 20220105
  Receipt Date: 20220303
  Transmission Date: 20220423
  Serious: No
  Sender: FDA-Public Use
  Company Number: US-PFIZER INC-202101843986

PATIENT
  Age: 80 Year
  Sex: Male

DRUGS (1)
  1. RELPAX [Suspect]
     Active Substance: ELETRIPTAN HYDROBROMIDE
     Indication: Migraine
     Dosage: 40 MG (TAKE 1 TABLET AT ONSET OF MIGRAINE, MAY REPEAT IN 2 HRS IF NEEDED)

REACTIONS (1)
  - Drug ineffective [Unknown]
